FAERS Safety Report 6846388-3 (Version None)
Quarter: 2010Q3

REPORT INFORMATION
  Report Type: 
  Country: None (occurrence: None)
  Receive Date: 20100715
  Receipt Date: 20081021
  Transmission Date: 20110219
  Serious: Yes (Hospitalization, Other)
  Sender: FDA-Public Use
  Company Number: US-PFIZER INC-2007076954

PATIENT
  Sex: Female
  Weight: 90.7 kg

DRUGS (16)
  1. CHANTIX [Suspect]
     Indication: SMOKING CESSATION THERAPY
     Route: 048
     Dates: start: 20071201, end: 20080501
  2. KLONOPIN [Concomitant]
  3. NEURONTIN [Concomitant]
  4. RISPERDAL [Concomitant]
  5. BACLOFEN [Concomitant]
  6. REGLAN [Concomitant]
  7. TOPROL-XL [Concomitant]
  8. PIROXICAM [Concomitant]
  9. ORAMORPH SR [Concomitant]
  10. WELLBUTRIN [Concomitant]
  11. VALIUM [Concomitant]
  12. PERCOCET [Concomitant]
  13. PRILOSEC [Concomitant]
  14. MECLIZINE [Concomitant]
  15. MIRALAX [Concomitant]
  16. TIKOSYN [Concomitant]

REACTIONS (7)
  - BLOOD POTASSIUM DECREASED [None]
  - CONFUSIONAL STATE [None]
  - HIP FRACTURE [None]
  - LUNG TRANSPLANT [None]
  - PULMONARY FIBROSIS [None]
  - STRESS [None]
  - VOMITING [None]
